FAERS Safety Report 16269751 (Version 2)
Quarter: 2019Q2

REPORT INFORMATION
  Report Type: Spontaneous
  Country: US (occurrence: US)
  Receive Date: 20190503
  Receipt Date: 20190507
  Transmission Date: 20190711
  Serious: No
  Sender: FDA-Public Use
  Company Number: US-PFIZER INC-2019185872

PATIENT
  Age: 55 Year
  Sex: Female

DRUGS (2)
  1. CANNABIDIOL [Interacting]
     Active Substance: CANNABIDIOL
     Dosage: UNK
  2. XELJANZ XR [Suspect]
     Active Substance: TOFACITINIB CITRATE
     Dosage: 11 MG, 1X/DAY

REACTIONS (6)
  - Sedation [Unknown]
  - Fatigue [Unknown]
  - Drug interaction [Unknown]
  - Somnolence [Unknown]
  - Intentional product misuse [Unknown]
  - Loss of personal independence in daily activities [Unknown]
